FAERS Safety Report 8501617-5 (Version None)
Quarter: 2012Q3

REPORT INFORMATION
  Report Type: 
  Country: None (occurrence: None)
  Receive Date: 20120710
  Receipt Date: 20120704
  Transmission Date: 20120928
  Serious: Yes (Other)
  Sender: FDA-Public Use
  Company Number: CHPA2012JP012147

PATIENT
  Age: 43 Year
  Sex: Male

DRUGS (2)
  1. XYLOCAINE [Concomitant]
     Dosage: UNK, UNK
     Route: 042
  2. NAPHAZOLINE HYDROCHLORIDE [Suspect]
     Indication: NASOENDOSCOPY
     Dosage: UNK, ONCE
     Route: 045
     Dates: start: 20120604, end: 20120604

REACTIONS (2)
  - HEADACHE [None]
  - BLOOD PRESSURE INCREASED [None]
